FAERS Safety Report 8181559-8 (Version None)
Quarter: 2012Q1

REPORT INFORMATION
  Report Type: 
  Country: None (occurrence: None)
  Receive Date: 20120302
  Receipt Date: 20120224
  Transmission Date: 20120608
  Serious: Yes (Hospitalization)
  Sender: FDA-Public Use
  Company Number: US-ABBOTT-12P-163-0909224-00

PATIENT
  Sex: Female
  Weight: 56.75 kg

DRUGS (2)
  1. HUMIRA [Suspect]
     Indication: CROHN'S DISEASE
     Route: 058
     Dates: start: 20080101
  2. IMURAN [Suspect]
     Indication: CROHN'S DISEASE
     Dates: start: 20110201, end: 20110301

REACTIONS (3)
  - FATIGUE [None]
  - MALAISE [None]
  - PANCREATITIS ACUTE [None]
